FAERS Safety Report 4298564-4 (Version None)
Quarter: 2004Q1

REPORT INFORMATION
  Report Type: 
  Country: None (occurrence: None)
  Receive Date: 20040126
  Receipt Date: 20030923
  Transmission Date: 20041129
  Serious: No
  Sender: FDA-Public Use
  Company Number: USA030948018

PATIENT
  Age: 14 Year
  Sex: Female
  Weight: 55 kg

DRUGS (1)
  1. STRATTERA [Suspect]
     Dosage: 60 MG/DAY
     Dates: start: 20030920

REACTIONS (3)
  - CHILLS [None]
  - FATIGUE [None]
  - FEELING HOT AND COLD [None]
